FAERS Safety Report 24310226 (Version 1)
Quarter: 2024Q3

REPORT INFORMATION
  Report Type: Spontaneous
  Country: US (occurrence: US)
  Receive Date: 20240912
  Receipt Date: 20240912
  Transmission Date: 20241017
  Serious: No
  Sender: ALVOGEN
  Company Number: US-ALVOGEN-2023092691

PATIENT
  Age: 69 Year
  Sex: Female

DRUGS (3)
  1. CLINDAMYCIN [Suspect]
     Active Substance: CLINDAMYCIN
     Indication: Product used for unknown indication
  2. RITLECITINIB [Suspect]
     Active Substance: RITLECITINIB
     Indication: Product used for unknown indication
     Dosage: 50 MG
  3. SULFAMETHOXAZOLE [Suspect]
     Active Substance: SULFAMETHOXAZOLE
     Indication: Product used for unknown indication

REACTIONS (1)
  - Rash [Unknown]
